FAERS Safety Report 11915529 (Version 1)
Quarter: 2016Q1

REPORT INFORMATION
  Report Type: Spontaneous
  Country: US (occurrence: None)
  Receive Date: 20160113
  Receipt Date: 20160113
  Transmission Date: 20160526
  Serious: Yes (Other)
  Sender: FDA-Public Use
  Company Number: None

PATIENT
  Age: 46 Year
  Sex: Female
  Weight: 51.71 kg

DRUGS (4)
  1. DEPO-SUBQ PROVERA [Suspect]
     Active Substance: MEDROXYPROGESTERONE ACETATE
     Indication: MENSTRUAL CYCLE MANAGEMENT
     Dosage: SHOT EVERY 3 MONTHS
     Dates: start: 20150716, end: 20150916
  2. IBUPROFEN. [Concomitant]
     Active Substance: IBUPROFEN
  3. IRON SUPPLEMENT [Concomitant]
     Active Substance: IRON
  4. DEPO-SUBQ PROVERA [Suspect]
     Active Substance: MEDROXYPROGESTERONE ACETATE
     Indication: CONTRACEPTION
     Dosage: SHOT EVERY 3 MONTHS
     Dates: start: 20150716, end: 20150916

REACTIONS (5)
  - Uterine leiomyoma [None]
  - Activities of daily living impaired [None]
  - Menometrorrhagia [None]
  - Feeling abnormal [None]
  - Impaired work ability [None]

NARRATIVE: CASE EVENT DATE: 20151008
